FAERS Safety Report 6195149-X (Version None)
Quarter: 2009Q2

REPORT INFORMATION
  Report Type: 
  Country: None (occurrence: None)
  Receive Date: 20090519
  Receipt Date: 20090512
  Transmission Date: 20091009
  Serious: Yes (Other)
  Sender: FDA-Public Use
  Company Number: GB-PFIZER INC-2009175218

PATIENT

DRUGS (1)
  1. MEDRONE [Suspect]
     Dosage: 4 MG, 1X/DAY

REACTIONS (1)
  - RASH [None]
